FAERS Safety Report 19283336 (Version 1)
Quarter: 2021Q2

REPORT INFORMATION
  Report Type: Report from Study
  Country: US (occurrence: US)
  Receive Date: 20210520
  Receipt Date: 20210520
  Transmission Date: 20210717
  Serious: No
  Sender: FDA-Public Use
  Company Number: NVSC2021US110980

PATIENT
  Sex: Female

DRUGS (1)
  1. TASIGNA [Suspect]
     Active Substance: NILOTINIB
     Indication: PRODUCT USED FOR UNKNOWN INDICATION
     Dosage: UNK
     Route: 048

REACTIONS (6)
  - Ocular discomfort [Unknown]
  - Constipation [Unknown]
  - Myalgia [Unknown]
  - Rhinorrhoea [Unknown]
  - Dermatitis acneiform [Unknown]
  - Pain in extremity [Unknown]
